FAERS Safety Report 11087971 (Version 2)
Quarter: 2015Q2

REPORT INFORMATION
  Report Type: Report from Study
  Country: NL (occurrence: NL)
  Receive Date: 20150504
  Receipt Date: 20150604
  Transmission Date: 20150821
  Serious: Yes (Life-Threatening, Hospitalization, Other)
  Sender: FDA-Public Use
  Company Number: PHHY2015NL050163

PATIENT
  Age: 64 Year
  Sex: Male

DRUGS (1)
  1. SANDOSTATIN LAR DEPOT [Suspect]
     Active Substance: OCTREOTIDE ACETATE
     Indication: NEUROENDOCRINE TUMOUR
     Dosage: 30 MG, ONCE 4 WEEKS
     Route: 030
     Dates: start: 20141220

REACTIONS (3)
  - Abdominal pain [Unknown]
  - Small intestinal perforation [Recovered/Resolved with Sequelae]
  - Neoplasm [Unknown]

NARRATIVE: CASE EVENT DATE: 20150326
